FAERS Safety Report 19256842 (Version 1)
Quarter: 2021Q2

REPORT INFORMATION
  Report Type: Spontaneous
  Country: US (occurrence: US)
  Receive Date: 20210513
  Receipt Date: 20210513
  Transmission Date: 20210717
  Serious: Yes (Other)
  Sender: FDA-Public Use
  Company Number: US-SUNOVION-2021SUN001756

PATIENT
  Sex: Female

DRUGS (11)
  1. LATUDA [Suspect]
     Active Substance: LURASIDONE HYDROCHLORIDE
     Dosage: 60 MG, QAM WITH BREAKFAST
     Route: 048
     Dates: start: 20210503
  2. LATUDA [Suspect]
     Active Substance: LURASIDONE HYDROCHLORIDE
     Indication: SCHIZOAFFECTIVE DISORDER BIPOLAR TYPE
     Dosage: 40 MG
     Route: 048
  3. VENLAFAXINE [Concomitant]
     Active Substance: VENLAFAXINE HYDROCHLORIDE
     Dosage: 225 MG, QD
     Route: 048
     Dates: start: 20210112
  4. TOPAMAX [Concomitant]
     Active Substance: TOPIRAMATE
     Dosage: UNK
  5. HYDROXYZINE PAMOATE. [Concomitant]
     Active Substance: HYDROXYZINE PAMOATE
     Dosage: 100 MG, THREE TIMES A DAY AS NECESSARY
     Route: 048
     Dates: start: 20210409
  6. SEROQUEL [Concomitant]
     Active Substance: QUETIAPINE FUMARATE
     Dosage: 600 MG (THREE 200 MG TABLETS), HS
     Route: 048
     Dates: start: 20210408
  7. QUETIAPINE FUMARATE. [Concomitant]
     Active Substance: QUETIAPINE FUMARATE
     Dosage: 400 MG, HS
     Route: 048
     Dates: start: 20210308
  8. KLONOPIN [Concomitant]
     Active Substance: CLONAZEPAM
     Dosage: 0.5 MG, ONCE A DAY AS NECESSARY
     Route: 048
     Dates: start: 20210501
  9. BUSPIRONE [Concomitant]
     Active Substance: BUSPIRONE HYDROCHLORIDE
     Dosage: 30 MG, BID
     Route: 048
     Dates: start: 20210409
  10. OXCARBAZEPINE. [Concomitant]
     Active Substance: OXCARBAZEPINE
     Dosage: 300 MG, BID
     Route: 048
     Dates: start: 20210409
  11. DEPAKOTE ER [Concomitant]
     Active Substance: DIVALPROEX SODIUM
     Dosage: 1000 MG (TWO 500 MG TABLETS), HS
     Route: 048
     Dates: start: 20210308

REACTIONS (11)
  - Drug effective for unapproved indication [Unknown]
  - Impulse-control disorder [Unknown]
  - Paranoia [Unknown]
  - Psychotic disorder [Unknown]
  - Overweight [Unknown]
  - Increased appetite [Unknown]
  - Mood altered [Unknown]
  - Delusion [Unknown]
  - Hallucination, auditory [Unknown]
  - Anxiety [Unknown]
  - Off label use [Unknown]
